FAERS Safety Report 21327756 (Version 1)
Quarter: 2022Q3

REPORT INFORMATION
  Report Type: Spontaneous
  Country: ES (occurrence: ES)
  Receive Date: 20220913
  Receipt Date: 20220913
  Transmission Date: 20221026
  Serious: Yes (Hospitalization, Other)
  Sender: FDA-Public Use
  Company Number: ES-EMA-20110818-raevhumanwt-142307204

PATIENT
  Age: 4 Year
  Sex: Male
  Weight: 20 kg

DRUGS (8)
  1. VALPROIC ACID [Interacting]
     Active Substance: VALPROIC ACID
     Indication: Epilepsy
     Dosage: 1 TOTAL, ONCE A DAY (30-50 MG/KG)
     Route: 065
  2. VALPROIC ACID [Interacting]
     Active Substance: VALPROIC ACID
     Dosage: 1 TOTAL, ONCE A DAY (45-80 MG/KG)
     Route: 065
     Dates: end: 20050206
  3. CEFOTAXIME [Suspect]
     Active Substance: CEFOTAXIME SODIUM
     Indication: Bacterial infection
     Dosage: UNK
     Route: 065
     Dates: start: 200505, end: 20050601
  4. MEROPENEM [Suspect]
     Active Substance: MEROPENEM
     Indication: Infection
     Dosage: 120 MILLIGRAM/KILOGRAM, 3 TIMES A DAY
     Route: 065
  5. AMOXICILLIN\CLAVULANATE POTASSIUM [Concomitant]
     Active Substance: AMOXICILLIN\CLAVULANATE POTASSIUM
     Indication: Product used for unknown indication
     Dosage: UNK
     Route: 065
  6. DIAZEPAM [Concomitant]
     Active Substance: DIAZEPAM
     Indication: Seizure
     Dosage: AS NECESSARY
     Route: 065
     Dates: start: 200505
  7. CLONAZEPAM [Concomitant]
     Active Substance: CLONAZEPAM
     Indication: Seizure
     Dosage: AS NECESSARY
     Route: 065
     Dates: start: 200505
  8. MIDAZOLAM [Concomitant]
     Active Substance: MIDAZOLAM
     Indication: Seizure
     Route: 065
     Dates: start: 200505

REACTIONS (7)
  - Drug interaction [Unknown]
  - Intentional self-injury [Unknown]
  - Bradycardia [Unknown]
  - Anticonvulsant drug level decreased [Unknown]
  - Irritability [Unknown]
  - Paresis [Unknown]
  - Rash [Unknown]

NARRATIVE: CASE EVENT DATE: 20050601
